FAERS Safety Report 4386483-4 (Version None)
Quarter: 2004Q2

REPORT INFORMATION
  Report Type: 
  Country: None (occurrence: None)
  Receive Date: 20040629
  Receipt Date: 20040614
  Transmission Date: 20050107
  Serious: Yes (Hospitalization)
  Sender: FDA-Public Use
  Company Number: FR-BRISTOL-MYERS SQUIBB COMPANY-12626412

PATIENT
  Age: 47 Year
  Sex: Female

DRUGS (15)
  1. ENDOXAN [Suspect]
     Indication: NON-HODGKIN'S LYMPHOMA
     Dosage: ON DAY 1 1ST DOSE: 01MAY04
     Route: 042
     Dates: start: 20040526, end: 20040526
  2. MESNA [Suspect]
     Dates: start: 20040501
  3. ADRIBLASTINE [Suspect]
     Indication: NON-HODGKIN'S LYMPHOMA
     Route: 042
     Dates: start: 20040501, end: 20040526
  4. CARDIOXANE [Suspect]
     Indication: NON-HODGKIN'S LYMPHOMA
     Route: 042
     Dates: start: 20040526
  5. ONCOVIN [Suspect]
     Indication: NON-HODGKIN'S LYMPHOMA
     Route: 042
     Dates: start: 20040501, end: 20040526
  6. MABCAMPATH [Suspect]
     Indication: NON-HODGKIN'S LYMPHOMA
     Dosage: 1ST CYCLE: 01MAY04 NEXT 2DOSES = 10 + 30 ON 28 + 29MAY
     Route: 042
     Dates: start: 20040527, end: 20040527
  7. TARGOCID [Concomitant]
  8. DIFFU-K [Concomitant]
  9. VALACYCLOVIR HCL [Concomitant]
  10. LEXOMIL [Concomitant]
  11. METRONIDAZOLE [Concomitant]
  12. SPASFON [Concomitant]
  13. METHYLPREDNISOLONE SODIUM SUCCINATE [Concomitant]
  14. POLARAMINE [Concomitant]
  15. DAFALGAN [Concomitant]

REACTIONS (1)
  - VIRAL MYOSITIS [None]
